FAERS Safety Report 7833526-9 (Version None)
Quarter: 2011Q4

REPORT INFORMATION
  Report Type: 
  Country: None (occurrence: None)
  Receive Date: 20111024
  Receipt Date: 20111012
  Transmission Date: 20120403
  Serious: Yes (Hospitalization)
  Sender: FDA-Public Use
  Company Number: US-BAYER-2010-009218

PATIENT
  Age: 30 Year
  Sex: Female
  Weight: 104.31 kg

DRUGS (4)
  1. CEPHALEXIN [Concomitant]
     Dosage: UNK
     Dates: start: 20050801
  2. YASMIN [Suspect]
     Indication: CONTRACEPTION
     Dosage: UNK
     Dates: start: 20050715, end: 20051108
  3. TRIMETHOPRIM [Concomitant]
     Dosage: UNK
     Dates: start: 20040101, end: 20050101
  4. YASMIN [Suspect]
     Indication: PREMENSTRUAL SYNDROME

REACTIONS (5)
  - CHEST PAIN [None]
  - INJURY [None]
  - PAIN [None]
  - PULMONARY EMBOLISM [None]
  - DYSPNOEA [None]
